FAERS Safety Report 5544781-2 (Version None)
Quarter: 2007Q4

REPORT INFORMATION
  Report Type: 
  Country: None (occurrence: None)
  Receive Date: 20071108
  Receipt Date: 20071025
  Transmission Date: 20080405
  Serious: Yes (Death)
  Sender: FDA-Public Use
  Company Number: THYM-10251

PATIENT
  Age: 48 Year
  Sex: Male
  Weight: 98.5 kg

DRUGS (23)
  1. THYMOGLOBULIN [Suspect]
     Indication: PROPHYLAXIS AGAINST TRANSPLANT REJECTION
     Dosage: 150 MG QD IV
     Route: 042
     Dates: start: 20040721, end: 20040721
  2. THYMOGLOBULIN [Suspect]
  3. THYMOGLOBULIN [Suspect]
  4. APROTONIN [Concomitant]
  5. VANCOMYCIN [Concomitant]
  6. FENTANYL [Concomitant]
  7. LASIX [Concomitant]
  8. UNSPECIFIED ANESTHETICS [Concomitant]
  9. BENADRYL [Concomitant]
  10. PEPCID [Concomitant]
  11. AMBIEN [Concomitant]
  12. AMIODARONE [Concomitant]
  13. ASPIRIN [Concomitant]
  14. COREG [Concomitant]
  15. COLACE [Concomitant]
  16. ISOSORBIDE DINITRATE [Concomitant]
  17. POTASSIUM CHLORIDE [Concomitant]
  18. LISINOPRIL [Concomitant]
  19. PHAZYME [Concomitant]
  20. PLAVIX [Concomitant]
  21. PROTONIX [Concomitant]
  22. ZESTRIL [Concomitant]
  23. SPIRONOLACTONE [Concomitant]

REACTIONS (23)
  - ANAPHYLACTIC REACTION [None]
  - ERYTHEMA [None]
  - FLUSHING [None]
  - GRANULOMA [None]
  - HAEMODIALYSIS [None]
  - HEPATIC FAILURE [None]
  - HEPATIC STEATOSIS [None]
  - HYPOTENSION [None]
  - LARYNGEAL OEDEMA [None]
  - LARYNGEAL ULCERATION [None]
  - LUNG INFECTION PSEUDOMONAL [None]
  - MULTI-ORGAN FAILURE [None]
  - NEPHROPATHY [None]
  - PERICARDITIS [None]
  - PLEURISY [None]
  - PNEUMONIA NECROTISING [None]
  - PSEUDOMEMBRANOUS COLITIS [None]
  - PULMONARY OEDEMA [None]
  - PYELONEPHRITIS [None]
  - RENAL FAILURE [None]
  - RESPIRATORY FAILURE [None]
  - SEPSIS [None]
  - VASOPLEGIA SYNDROME [None]
